FAERS Safety Report 14584225 (Version 1)
Quarter: 2018Q1

REPORT INFORMATION
  Report Type: Spontaneous
  Country: US (occurrence: US)
  Receive Date: 20180228
  Receipt Date: 20180228
  Transmission Date: 20180509
  Serious: No
  Sender: FDA-Public Use
  Company Number: US-IRONWOOD PHARMACEUTICALS, INC.-IRWD2017004669

PATIENT
  Sex: Female

DRUGS (1)
  1. DUZALLO [Suspect]
     Active Substance: ALLOPURINOL\LESINURAD
     Indication: GOUT
     Dosage: 200 MG/300 MG, (UNK)
     Route: 065
     Dates: start: 20171109

REACTIONS (1)
  - Gastrointestinal disorder [Unknown]
